FAERS Safety Report 8184718 (Version 2)
Quarter: 2012Q4

REPORT INFORMATION
  Report Type: 
  Country: US (occurrence: US)
  Receive Date: 20111018
  Receipt Date: 20120917
  Transmission Date: 20130627
  Serious: Yes (Hospitalization, Other)
  Sender: FDA-Public Use
  Company Number: US-JNJFOC-20111004242

PATIENT
  Sex: Female

DRUGS (4)
  1. REMICADE [Suspect]
     Indication: COLITIS ULCERATIVE
     Route: 042
  2. BIRTH CONTROL PILL [Concomitant]
     Route: 065
  3. LIALDA [Concomitant]
     Route: 065
  4. SULFASALAZINE [Concomitant]
     Route: 065

REACTIONS (1)
  - Mesenteric vein thrombosis [Not Recovered/Not Resolved]
